FAERS Safety Report 8539566-9 (Version None)
Quarter: 2012Q3

REPORT INFORMATION
  Report Type: 
  Country: None (occurrence: None)
  Receive Date: 20120726
  Receipt Date: 20120713
  Transmission Date: 20120928
  Serious: Yes (Other)
  Sender: FDA-Public Use
  Company Number: IT-ELI_LILLY_AND_COMPANY-IT201207004570

PATIENT
  Sex: Female

DRUGS (4)
  1. DELORAZEPAM [Concomitant]
     Dosage: 1 DF, UNKNOWN
  2. ESTAZOLAM [Concomitant]
     Dosage: 2 DF, UNKNOWN
  3. ZYPREXA [Suspect]
     Indication: SCHIZOID PERSONALITY DISORDER
     Dosage: 10 MG, QD
     Dates: start: 20070705, end: 20120705
  4. LEVOMEPROMAZINE [Concomitant]
     Dosage: 1 DF, UNKNOWN

REACTIONS (1)
  - NEUTROPENIA [None]
